FAERS Safety Report 7350305-X (Version None)
Quarter: 2011Q1

REPORT INFORMATION
  Report Type: 
  Country: None (occurrence: None)
  Receive Date: 20110314
  Receipt Date: 20110303
  Transmission Date: 20110831
  Serious: Yes (Hospitalization)
  Sender: FDA-Public Use
  Company Number: DE-TEVA-270091GER

PATIENT
  Age: 20 Year
  Sex: Male

DRUGS (3)
  1. BLEOMYCIN SULFATE [Suspect]
     Indication: TESTICULAR GERM CELL CANCER
  2. ETOPOSIDE [Suspect]
     Indication: TESTICULAR GERM CELL CANCER
  3. CISPLATIN [Suspect]
     Indication: TESTICULAR GERM CELL CANCER

REACTIONS (5)
  - SEPSIS [None]
  - PANCYTOPENIA [None]
  - METASTASIS [None]
  - INTRACARDIAC MASS [None]
  - PULMONARY EMBOLISM [None]
